FAERS Safety Report 24089725 (Version 1)
Quarter: 2024Q3

REPORT INFORMATION
  Report Type: Spontaneous
  Country: US (occurrence: US)
  Receive Date: 20240715
  Receipt Date: 20240715
  Transmission Date: 20241017
  Serious: Yes (Other)
  Sender: CHEPLAPHARM
  Company Number: US-CHEPLA-2024008690

PATIENT
  Age: 68 Year
  Sex: Female

DRUGS (12)
  1. VALGANCICLOVIR [Suspect]
     Active Substance: VALGANCICLOVIR
     Indication: Antiviral prophylaxis
  2. GANCICLOVIR [Suspect]
     Active Substance: GANCICLOVIR
     Indication: Cytomegalovirus colitis
     Route: 042
  3. BASILIXIMAB [Suspect]
     Active Substance: BASILIXIMAB
     Indication: Immunosuppression
     Dosage: INDUCTION IMMUNOSUPPRESSION
  4. METHYLPREDNISOLONE [Suspect]
     Active Substance: METHYLPREDNISOLONE
     Indication: Immunosuppression
     Dosage: INDUCTION IMMUNOSUPPRESSION
  5. METHYLPREDNISOLONE [Suspect]
     Active Substance: METHYLPREDNISOLONE
     Indication: Immunosuppression
     Dosage: IN 2 DIVIDED DOSES.
     Route: 042
  6. TACROLIMUS [Suspect]
     Active Substance: TACROLIMUS
     Indication: Immunosuppression
     Dosage: MAINTENANCE IMMUNOSUPPRESSION-12-HOUR TROUGH LEVELS OF 8 TO 10 NG/DL
  7. TACROLIMUS [Suspect]
     Active Substance: TACROLIMUS
     Indication: Immunosuppression
     Dosage: ADJUSTED TO 5 TO 7 NG/DL
  8. MYCOPHENOLATE MOFETIL [Suspect]
     Active Substance: MYCOPHENOLATE MOFETIL
     Indication: Immunosuppression
     Dosage: MAINTENANCE IMMUNOSUPPRESSION?TWICE DAILY?DAILY DOSE: 2000 MILLIGRAM
     Route: 048
  9. MYCOPHENOLATE MOFETIL [Suspect]
     Active Substance: MYCOPHENOLATE MOFETIL
     Indication: Immunosuppression
     Dosage: REDUCED TO 750MG TWICE DAILY?DAILY DOSE: 1500 MILLIGRAM
     Route: 048
  10. MYCOPHENOLATE MOFETIL [Suspect]
     Active Substance: MYCOPHENOLATE MOFETIL
     Indication: Immunosuppression
     Dosage: REDUCED TO 500MG TWICE DAILY?DAILY DOSE: 1000 MILLIGRAM
     Route: 048
  11. MYCOPHENOLATE MOFETIL [Suspect]
     Active Substance: MYCOPHENOLATE MOFETIL
     Indication: Immunosuppression
     Dosage: TWICE DAILY?DAILY DOSE: 500 MILLIGRAM
     Route: 048
  12. PREDNISONE [Suspect]
     Active Substance: PREDNISONE
     Indication: Immunosuppression
     Dosage: MAINTENANCE IMMUNOSUPPRESSION??DAILY DOSE: 5 MILLIGRAM
     Route: 048

REACTIONS (7)
  - Large intestine perforation [Unknown]
  - Polyomavirus viraemia [Unknown]
  - Polyomavirus-associated nephropathy [Unknown]
  - Acute kidney injury [Unknown]
  - Transplant rejection [Unknown]
  - Cytomegalovirus colitis [Unknown]
  - COVID-19 [Unknown]
